FAERS Safety Report 7766687-0 (Version None)
Quarter: 2011Q3

REPORT INFORMATION
  Report Type: 
  Country: None (occurrence: None)
  Receive Date: 20110922
  Receipt Date: 20110913
  Transmission Date: 20111222
  Serious: Yes (Other)
  Sender: FDA-Public Use
  Company Number: IT-JNJFOC-20101108706

PATIENT
  Sex: Female

DRUGS (2)
  1. RISPERIDONE [Suspect]
     Route: 065
  2. RISPERIDONE [Suspect]
     Indication: SCHIZOPHRENIA
     Route: 065
     Dates: start: 20101028

REACTIONS (2)
  - MATERNAL EXPOSURE DURING PREGNANCY [None]
  - RETINOPATHY [None]
